FAERS Safety Report 9089597 (Version 1)
Quarter: 2013Q1

REPORT INFORMATION
  Report Type: Spontaneous
  Country: US (occurrence: US)
  Receive Date: 20130131
  Receipt Date: 20130131
  Transmission Date: 20140127
  Serious: No
  Sender: FDA-Public Use
  Company Number: US-ASTRAZENECA-2013SE04423

PATIENT
  Sex: Male

DRUGS (3)
  1. TOPROL XL [Suspect]
     Indication: ARRHYTHMIA
     Route: 048
  2. TOPROL XL [Suspect]
     Indication: ARRHYTHMIA
     Route: 048
  3. TOPROL XL [Suspect]
     Indication: ARRHYTHMIA
     Dosage: 62.5MG-25MG IN DAY, 12.5MG AT LUNCH, 25MG IN THE EVENING
     Route: 048

REACTIONS (5)
  - Blood pressure increased [Unknown]
  - Heart rate decreased [Unknown]
  - Palpitations [Unknown]
  - Off label use [Unknown]
  - Drug ineffective [Recovered/Resolved]
